FAERS Safety Report 6295541-9 (Version None)
Quarter: 2009Q3

REPORT INFORMATION
  Report Type: 
  Country: None (occurrence: None)
  Receive Date: 20090731
  Receipt Date: 20090716
  Transmission Date: 20100115
  Serious: Yes (Life-Threatening)
  Sender: FDA-Public Use
  Company Number: DSJ-2009-08872

PATIENT
  Age: 67 Year
  Sex: Male
  Weight: 64 kg

DRUGS (2)
  1. OLMETEC        (OLMESARTAN MEDOXOML) [Suspect]
     Indication: ESSENTIAL HYPERTENSION
     Dosage: 20 MG (20 MG, 1 IN 1 D), PER  ORAL
     Route: 048
     Dates: start: 20050811
  2. TIOVITA GOLD ( INGREDIENT UNKNOWN) [Suspect]

REACTIONS (5)
  - BLOOD PRESSURE DECREASED [None]
  - BURNING SENSATION [None]
  - DRUG INTERACTION [None]
  - FALL [None]
  - SYNCOPE [None]
